FAERS Safety Report 20337064 (Version 2)
Quarter: 2022Q2

REPORT INFORMATION
  Report Type: Spontaneous
  Country: BR (occurrence: None)
  Receive Date: 20220114
  Receipt Date: 20220524
  Transmission Date: 20220721
  Serious: No
  Sender: FDA-Public Use
  Company Number: BR-Covis Pharma GmbH-2022COV00057

PATIENT
  Age: 51 Year
  Sex: Male

DRUGS (1)
  1. OMNARIS [Suspect]
     Active Substance: CICLESONIDE
     Indication: Influenza
     Dosage: 3 SPRAYS ON EACH NOSTRIL EVERY 4/6 HOURS. DEPENDING ON THE SYMPTOMS, 3 SPRAYS DIRECTLY IN THE THROAT
     Route: 045
     Dates: start: 2011

REACTIONS (4)
  - Product use in unapproved indication [Unknown]
  - Therapeutic response unexpected [Unknown]
  - Incorrect route of product administration [Unknown]
  - Overdose [Unknown]

NARRATIVE: CASE EVENT DATE: 20110101
